FAERS Safety Report 11931034 (Version 1)
Quarter: 2016Q1

REPORT INFORMATION
  Report Type: Spontaneous
  Country: US (occurrence: US)
  Receive Date: 20160120
  Receipt Date: 20160120
  Transmission Date: 20160526
  Serious: No
  Sender: FDA-Public Use
  Company Number: US-INCYTE CORPORATION-2015IN004490

PATIENT
  Age: 67 Year
  Sex: Male
  Weight: 48.98 kg

DRUGS (7)
  1. TAMSULOSIN HCL [Concomitant]
     Active Substance: TAMSULOSIN
     Dosage: 0.4 MG
  2. ANAGRELIDE HCL [Concomitant]
     Dosage: 1 MG
  3. CHLORTHALIDONE. [Concomitant]
     Active Substance: CHLORTHALIDONE
     Dosage: 25 MG
  4. ALBUTEROL                          /00139501/ [Concomitant]
     Active Substance: ALBUTEROL
  5. GLYBURIDE. [Concomitant]
     Active Substance: GLYBURIDE
     Dosage: 5 MG
  6. JAKAFI [Suspect]
     Active Substance: RUXOLITINIB
     Indication: MYELOFIBROSIS
     Dosage: 20 MG, BID
     Route: 048
     Dates: start: 20150714
  7. LORAZEPAM. [Concomitant]
     Active Substance: LORAZEPAM
     Dosage: 1 MG

REACTIONS (3)
  - Dyspnoea [Unknown]
  - Pain in extremity [Unknown]
  - Oedema peripheral [Unknown]

NARRATIVE: CASE EVENT DATE: 20150908
